FAERS Safety Report 10018941 (Version 2)
Quarter: 2014Q2

REPORT INFORMATION
  Report Type: Spontaneous
  Country: US (occurrence: US)
  Receive Date: 20140318
  Receipt Date: 20140603
  Transmission Date: 20141212
  Serious: Yes (Death)
  Sender: FDA-Public Use
  Company Number: US-GLAXOSMITHKLINE-A1064945A

PATIENT
  Age: 46 Year
  Sex: Female

DRUGS (1)
  1. TYKERB [Suspect]
     Indication: MALIGNANT NIPPLE NEOPLASM
     Dosage: 1250MG PER DAY
     Route: 048
     Dates: start: 20121220

REACTIONS (1)
  - Disease progression [Fatal]
